FAERS Safety Report 12745306 (Version 2)
Quarter: 2016Q3

REPORT INFORMATION
  Report Type: Spontaneous
  Country: TW (occurrence: TW)
  Receive Date: 20160915
  Receipt Date: 20160928
  Transmission Date: 20161109
  Serious: Yes (Death)
  Sender: FDA-Public Use
  Company Number: TW-ROCHE-1829587

PATIENT
  Age: 48 Year
  Sex: Female

DRUGS (10)
  1. CISPLATIN. [Concomitant]
     Active Substance: CISPLATIN
     Dosage: 6 CYCLES
     Route: 065
     Dates: start: 20070321, end: 20070921
  2. TAXOL [Concomitant]
     Active Substance: PACLITAXEL
     Indication: LUNG ADENOCARCINOMA
     Route: 065
     Dates: start: 20100115, end: 20100330
  3. AVASTIN [Suspect]
     Active Substance: BEVACIZUMAB
     Indication: LUNG ADENOCARCINOMA
     Route: 065
     Dates: start: 20100330, end: 20100806
  4. GEMZAR [Concomitant]
     Active Substance: GEMCITABINE HYDROCHLORIDE
     Route: 065
     Dates: start: 20100330, end: 20100806
  5. GEMZAR [Concomitant]
     Active Substance: GEMCITABINE HYDROCHLORIDE
     Indication: LUNG ADENOCARCINOMA
     Route: 065
     Dates: start: 20070321, end: 20070921
  6. CISPLATIN. [Concomitant]
     Active Substance: CISPLATIN
     Indication: LUNG ADENOCARCINOMA
     Dosage: 2 CYCLES
     Route: 065
     Dates: start: 20061227, end: 20070223
  7. TAXOTERE [Concomitant]
     Active Substance: DOCETAXEL
     Indication: LUNG ADENOCARCINOMA
     Dosage: 2 CYCLES
     Route: 065
     Dates: start: 20061227, end: 20070223
  8. TAXOTERE [Concomitant]
     Active Substance: DOCETAXEL
     Route: 065
     Dates: start: 20091009, end: 20100115
  9. TARCEVA [Suspect]
     Active Substance: ERLOTINIB HYDROCHLORIDE
     Indication: LUNG ADENOCARCINOMA
     Route: 065
     Dates: start: 20080305, end: 20090710
  10. NAVELBINE [Concomitant]
     Active Substance: VINORELBINE TARTRATE
     Indication: LUNG ADENOCARCINOMA
     Dosage: 3 CYCLES
     Route: 065
     Dates: start: 20090710, end: 20090911

REACTIONS (1)
  - Death [Fatal]

NARRATIVE: CASE EVENT DATE: 20100914
